FAERS Safety Report 9162906 (Version 8)
Quarter: 2014Q3

REPORT INFORMATION
  Report Type: Spontaneous
  Country: US (occurrence: US)
  Receive Date: 20130314
  Receipt Date: 20140908
  Transmission Date: 20150326
  Serious: Yes (Hospitalization, Disabling, Other)
  Sender: FDA-Public Use
  Company Number: US-009507513-1303USA005023

PATIENT
  Sex: Female
  Weight: 62.13 kg

DRUGS (8)
  1. CYANOCOBALAMIN. [Concomitant]
     Active Substance: CYANOCOBALAMIN
     Dosage: 100 MG, QD
     Dates: start: 2000
  2. CHONDROITIN SULFATE SODIUM (+) GLUCOSAMINE SULFATE [Concomitant]
     Dosage: 1500, QD/1200
     Dates: start: 2000
  3. ASCORBIC ACID. [Concomitant]
     Active Substance: ASCORBIC ACID
     Dosage: 500 MG, QD
     Dates: start: 2000
  4. ALENDRONATE SODIUM. [Suspect]
     Active Substance: ALENDRONATE SODIUM
     Indication: OSTEOPOROSIS
     Dosage: 70 MG, QW
     Route: 048
     Dates: start: 20080218, end: 20100510
  5. CALCIUM (UNSPECIFIED) (+) VITAMIN D (UNSPECIFIED) [Concomitant]
     Active Substance: CALCIUM CARBONATE\VITAMIN D
     Dosage: 1200 MG, QD/1000MG
     Dates: start: 2000
  6. FOLIC ACID. [Concomitant]
     Active Substance: FOLIC ACID
     Dosage: 400 MG, QD
     Dates: start: 2000
  7. FOSAMAX [Suspect]
     Active Substance: ALENDRONATE SODIUM
     Indication: OSTEOPOROSIS
     Dosage: 70 MG, QW
     Route: 048
     Dates: start: 20050303, end: 20071123
  8. VITAMINS (UNSPECIFIED) [Concomitant]
     Active Substance: VITAMINS
     Dosage: ONE A DAY
     Dates: start: 2000

REACTIONS (25)
  - Mitral valve incompetence [Unknown]
  - Arthropathy [Unknown]
  - Femur fracture [Recovered/Resolved]
  - Femur fracture [Not Recovered/Not Resolved]
  - Breast operation [Unknown]
  - Gallbladder operation [Unknown]
  - Ovarian cystectomy [Unknown]
  - Oophorectomy [Unknown]
  - Osteoarthritis [Unknown]
  - Intramedullary rod insertion [Unknown]
  - Haemorrhagic anaemia [Unknown]
  - Appendicectomy [Unknown]
  - Cholelithiasis [Unknown]
  - Back pain [Recovering/Resolving]
  - Femur fracture [Unknown]
  - Glaucoma [Unknown]
  - Hysterectomy [Unknown]
  - Osteopenia [Unknown]
  - Pulmonary mass [Unknown]
  - Urinary tract infection [Unknown]
  - Arthralgia [Unknown]
  - Pain in extremity [Unknown]
  - Cataract operation [Unknown]
  - Cataract operation [Unknown]
  - Breast cyst excision [Unknown]

NARRATIVE: CASE EVENT DATE: 2005
